FAERS Safety Report 5812687-7 (Version None)
Quarter: 2008Q3

REPORT INFORMATION
  Report Type: 
  Country: None (occurrence: None)
  Receive Date: 20080714
  Receipt Date: 20070815
  Transmission Date: 20090109
  Serious: Yes (Other)
  Sender: FDA-Public Use
  Company Number: WAES 0708USA05866

PATIENT
  Age: 29 Year
  Sex: Female

DRUGS (4)
  1. CRIXIVAN [Suspect]
  2. LAMIVUDINE [Concomitant]
  3. RITONAVIR [Concomitant]
  4. ZIDOVUDINE [Concomitant]

REACTIONS (5)
  - ABORTION INDUCED [None]
  - ALCOHOL USE [None]
  - DRUG EXPOSURE DURING PREGNANCY [None]
  - MATERNAL USE OF ILLICIT DRUGS [None]
  - TOBACCO USER [None]
